FAERS Safety Report 19253221 (Version 1)
Quarter: 2021Q2

REPORT INFORMATION
  Report Type: Spontaneous
  Country: US (occurrence: US)
  Receive Date: 20210513
  Receipt Date: 20210513
  Transmission Date: 20210717
  Serious: No
  Sender: FDA-Public Use
  Company Number: US-PFIZER INC-2021513611

PATIENT
  Age: 64 Year

DRUGS (1)
  1. XELJANZ XR [Suspect]
     Active Substance: TOFACITINIB CITRATE
     Indication: POLYARTHRITIS

REACTIONS (15)
  - Dyspnoea [Unknown]
  - Fatigue [Unknown]
  - Off label use [Unknown]
  - Myalgia [Unknown]
  - Palpitations [Unknown]
  - Gastrointestinal disorder [Unknown]
  - Joint stiffness [Unknown]
  - Photosensitivity reaction [Unknown]
  - Dyspnoea exertional [Unknown]
  - Drug ineffective for unapproved indication [Unknown]
  - Lymphadenopathy [Unknown]
  - Alopecia [Unknown]
  - Rash [Unknown]
  - Dry mouth [Unknown]
  - Mucosal disorder [Unknown]
